FAERS Safety Report 9617114 (Version 1)
Quarter: 2013Q4

REPORT INFORMATION
  Report Type: Spontaneous
  Country: US (occurrence: US)
  Receive Date: 20131011
  Receipt Date: 20131011
  Transmission Date: 20140711
  Serious: No
  Sender: FDA-Public Use
  Company Number: US-TARO-2013P1007569

PATIENT
  Age: 25 Month
  Sex: Male
  Weight: 12.25 kg

DRUGS (3)
  1. LORATADINE SYRUP (LORATADINE ORAL SOLUTION USP) 5MG/5ML [Suspect]
     Route: 048
     Dates: start: 20130604, end: 20130606
  2. LORATADINE SYRUP (LORATADINE ORAL SOLUTION USP) 5MG/5ML [Suspect]
     Route: 048
     Dates: start: 20130604, end: 20130606
  3. AXID [Suspect]

REACTIONS (5)
  - Drug ineffective [Not Recovered/Not Resolved]
  - Disturbance in attention [Recovered/Resolved]
  - Hypersomnia [Recovered/Resolved]
  - Abnormal behaviour [Recovered/Resolved]
  - Overdose [Unknown]
